FAERS Safety Report 4380817-2 (Version None)
Quarter: 2004Q2

REPORT INFORMATION
  Report Type: 
  Country: None (occurrence: None)
  Receive Date: 20040616
  Receipt Date: 20040601
  Transmission Date: 20050107
  Serious: Yes (Hospitalization)
  Sender: FDA-Public Use
  Company Number: EWC040639513

PATIENT
  Age: 29 Year
  Sex: Female

DRUGS (1)
  1. FLUOXETINE [Suspect]
     Indication: DEPRESSION
     Dosage: 40 MG
     Dates: start: 20030301, end: 20040301

REACTIONS (16)
  - BLOOD PRESSURE INCREASED [None]
  - CAESAREAN SECTION [None]
  - DRUG EXPOSURE DURING PREGNANCY [None]
  - FACIAL PALSY [None]
  - FATIGUE [None]
  - LACRIMATION INCREASED [None]
  - LIVER FUNCTION TEST ABNORMAL [None]
  - MALAISE [None]
  - NAUSEA [None]
  - PARAESTHESIA [None]
  - PLATELET COUNT DECREASED [None]
  - PRE-ECLAMPSIA [None]
  - PREGNANCY [None]
  - PROTEIN URINE PRESENT [None]
  - SALIVARY HYPERSECRETION [None]
  - VOMITING [None]
